FAERS Safety Report 18159948 (Version 2)
Quarter: 2020Q3

REPORT INFORMATION
  Report Type: Spontaneous
  Country: CA (occurrence: CN)
  Receive Date: 20200817
  Receipt Date: 20200824
  Transmission Date: 20201103
  Serious: Yes (Disabling)
  Sender: FDA-Public Use
  Company Number: CA-ANIPHARMA-2020-CN-000224

PATIENT
  Sex: Female

DRUGS (1)
  1. ARIMIDEX [Suspect]
     Active Substance: ANASTROZOLE
     Indication: BREAST CANCER
     Route: 048
     Dates: start: 2018

REACTIONS (5)
  - Gait disturbance [Unknown]
  - Arthropathy [Unknown]
  - Arthralgia [Unknown]
  - Product dose omission issue [Unknown]
  - Dysstasia [Recovered/Resolved with Sequelae]
